FAERS Safety Report 6409681-4 (Version None)
Quarter: 2009Q4

REPORT INFORMATION
  Report Type: 
  Country: None (occurrence: None)
  Receive Date: 20091021
  Receipt Date: 20091021
  Transmission Date: 20100525
  Serious: Yes (Hospitalization, Other)
  Sender: FDA-Public Use
  Company Number: None

PATIENT
  Age: 28 Year
  Sex: Female
  Weight: 72.5755 kg

DRUGS (1)
  1. YASMIN [Suspect]
     Dosage: ONCE DAILY
     Dates: start: 20070101, end: 20091002

REACTIONS (5)
  - CHEST PAIN [None]
  - CHOLECYSTECTOMY [None]
  - HYPOAESTHESIA [None]
  - MIGRAINE [None]
  - VISUAL IMPAIRMENT [None]
